FAERS Safety Report 4579224-9 (Version None)
Quarter: 2005Q1

REPORT INFORMATION
  Report Type: 
  Country: None (occurrence: None)
  Receive Date: 20050209
  Receipt Date: 20050209
  Transmission Date: 20050727
  Serious: Yes (Hospitalization)
  Sender: FDA-Public Use
  Company Number: None

PATIENT
  Age: 30 Year
  Sex: Female
  Weight: 68.4 kg

DRUGS (13)
  1. CAPECITABINE [Suspect]
     Indication: ADENOID CYSTIC CARCINOMA
     Dosage: 3000 MG, DIVIDED BID, ORAL, DAYS 1-14 EVERY 3 WEEKS
     Route: 048
     Dates: start: 20041021, end: 20041124
  2. OXALIPLATIN [Suspect]
     Indication: ADENOID CYSTIC CARCINOMA
     Dosage: 228 MG, DAY 1 EVERY 3 WEEKS,  INTRAVENOUS
     Route: 042
     Dates: start: 20041021, end: 20041111
  3. ATIVAN [Concomitant]
  4. BACLOFEN [Concomitant]
  5. DILAUDID [Concomitant]
  6. ILOTYCIN [Concomitant]
  7. NEURONTIN [Concomitant]
  8. PAMELOR [Concomitant]
  9. REGLAN [Concomitant]
  10. VALIUM [Concomitant]
  11. ZANAFLEX [Concomitant]
  12. ZOMETA [Concomitant]
  13. DARBEPOETIN [Concomitant]

REACTIONS (3)
  - DISEASE PROGRESSION [None]
  - HYPOAESTHESIA [None]
  - NEUROPATHY PERIPHERAL [None]
